FAERS Safety Report 24050886 (Version 1)
Quarter: 2024Q3

REPORT INFORMATION
  Report Type: Report from Study
  Country: CO (occurrence: CO)
  Receive Date: 20240704
  Receipt Date: 20240704
  Transmission Date: 20241016
  Serious: Yes (Death, Other)
  Sender: UCB
  Company Number: CO-UCBSA-2024033848

PATIENT
  Age: 14 Year
  Sex: Male
  Weight: 49 kg

DRUGS (2)
  1. LACOSAMIDE [Suspect]
     Active Substance: LACOSAMIDE
     Indication: Epilepsy
     Dosage: 10 MILLILITER, 12 HOURS
     Route: 048
     Dates: start: 20240216, end: 20240422
  2. LACOSAMIDE [Suspect]
     Active Substance: LACOSAMIDE
     Dosage: 15 MILLILITER, 12 HOURS
     Route: 048
     Dates: start: 20240423, end: 20240502

REACTIONS (3)
  - Injury [Fatal]
  - Seizure [Recovered/Resolved with Sequelae]
  - Fall [Recovered/Resolved with Sequelae]

NARRATIVE: CASE EVENT DATE: 20240401
